FAERS Safety Report 5535884-7 (Version None)
Quarter: 2007Q4

REPORT INFORMATION
  Report Type: 
  Country: None (occurrence: None)
  Receive Date: 20071206
  Receipt Date: 20070618
  Transmission Date: 20080405
  Serious: Yes (Other)
  Sender: FDA-Public Use
  Company Number: US-AMGEN-STX226187

PATIENT
  Sex: Male

DRUGS (2)
  1. ENBREL [Suspect]
     Indication: PSORIATIC ARTHROPATHY
     Route: 058
     Dates: start: 20021125, end: 20070101
  2. ENBREL [Suspect]
     Indication: PSORIASIS

REACTIONS (2)
  - LOWER RESPIRATORY TRACT INFECTION FUNGAL [None]
  - PSORIASIS [None]
